FAERS Safety Report 12569626 (Version 1)
Quarter: 2016Q3

REPORT INFORMATION
  Report Type: Spontaneous
  Country: US (occurrence: US)
  Receive Date: 20160719
  Receipt Date: 20160719
  Transmission Date: 20161109
  Serious: No
  Sender: FDA-Public Use
  Company Number: US-PERRIGO-15US010096

PATIENT
  Age: 10 Month
  Sex: Female
  Weight: 9.52 kg

DRUGS (5)
  1. POLYETHYLENE GLYCOL 3350. [Suspect]
     Active Substance: POLYETHYLENE GLYCOL 3350
     Indication: CONSTIPATION
     Dosage: 8.5 G, PRN
     Route: 048
     Dates: start: 201409, end: 201504
  2. POLYETHYLENE GLYCOL 3350. [Suspect]
     Active Substance: POLYETHYLENE GLYCOL 3350
     Dosage: 1 TSP, PRN
     Route: 048
     Dates: start: 201504, end: 201505
  3. POLYETHYLENE GLYCOL 3350. [Suspect]
     Active Substance: POLYETHYLENE GLYCOL 3350
     Dosage: 1 TSP, PRN
     Route: 048
     Dates: start: 201505, end: 20150731
  4. POLYETHYLENE GLYCOL 3350. [Suspect]
     Active Substance: POLYETHYLENE GLYCOL 3350
     Dosage: 1 TSP, SINGLE
     Route: 048
     Dates: start: 20150921, end: 20150921
  5. POLYETHYLENE GLYCOL 3350. [Suspect]
     Active Substance: POLYETHYLENE GLYCOL 3350
     Dosage: 2 TSP, SINGLE
     Route: 048
     Dates: start: 20150922, end: 20150922

REACTIONS (4)
  - Diarrhoea [Not Recovered/Not Resolved]
  - Drug effect decreased [Unknown]
  - Drug administered to patient of inappropriate age [Unknown]
  - Abdominal pain [Not Recovered/Not Resolved]

NARRATIVE: CASE EVENT DATE: 201409
